FAERS Safety Report 6848584-8 (Version None)
Quarter: 2010Q3

REPORT INFORMATION
  Report Type: 
  Country: None (occurrence: None)
  Receive Date: 20100716
  Receipt Date: 20100713
  Transmission Date: 20110219
  Serious: Yes (Hospitalization, Other)
  Sender: FDA-Public Use
  Company Number: GB-BRISTOL-MYERS SQUIBB COMPANY-15043433

PATIENT
  Age: 39 Year
  Sex: Male
  Weight: 80 kg

DRUGS (1)
  1. SPRYCEL [Suspect]
     Indication: CHRONIC MYELOID LEUKAEMIA
     Route: 048
     Dates: start: 20081001, end: 20091201

REACTIONS (2)
  - COLITIS ULCERATIVE [None]
  - IRON DEFICIENCY ANAEMIA [None]
